FAERS Safety Report 7110840-6 (Version None)
Quarter: 2010Q4

REPORT INFORMATION
  Report Type: 
  Country: None (occurrence: None)
  Receive Date: 20101118
  Receipt Date: 20101116
  Transmission Date: 20110411
  Serious: Yes (Hospitalization)
  Sender: FDA-Public Use
  Company Number: US-BRISTOL-MYERS SQUIBB COMPANY-15389893

PATIENT
  Age: 70 Year
  Sex: Male
  Weight: 80 kg

DRUGS (16)
  1. CARBOPLATIN [Suspect]
     Indication: NON-SMALL CELL LUNG CANCER
     Dosage: 1DF:6AUC
     Route: 042
     Dates: start: 20100622, end: 20100803
  2. PEMETREXED DISODIUM [Suspect]
     Indication: NON-SMALL CELL LUNG CANCER
     Route: 042
     Dates: start: 20100622, end: 20100803
  3. BEVACIZUMAB [Suspect]
     Indication: NON-SMALL CELL LUNG CANCER
     Route: 042
     Dates: start: 20100622, end: 20100803
  4. NEXIUM [Concomitant]
     Indication: PEPTIC ULCER
  5. BYSTOLIC [Concomitant]
     Indication: HYPERTENSION
  6. COMPAZINE [Concomitant]
  7. FOLIC ACID [Concomitant]
     Dates: start: 20100115
  8. MEGACE [Concomitant]
     Indication: WEIGHT DECREASED
     Dates: start: 20100810
  9. ALLEGRA [Concomitant]
  10. TIMOPTIC [Concomitant]
  11. DIFLUPREDNATE [Concomitant]
  12. CIPROFLOXACIN [Concomitant]
     Indication: URINARY TRACT INFECTION
  13. ZESTRIL [Concomitant]
     Indication: HYPERTENSION
  14. VITAMIN B-12 [Concomitant]
     Dates: start: 20100115
  15. ASPIRIN [Concomitant]
  16. DECADRON [Concomitant]

REACTIONS (2)
  - INAPPROPRIATE ANTIDIURETIC HORMONE SECRETION [None]
  - THROMBOCYTOPENIA [None]
